FAERS Safety Report 23275954 (Version 1)
Quarter: 2023Q4

REPORT INFORMATION
  Report Type: Spontaneous
  Country: CN (occurrence: CN)
  Receive Date: 20231208
  Receipt Date: 20231208
  Transmission Date: 20240109
  Serious: Yes (Life-Threatening, Hospitalization)
  Sender: FDA-Public Use
  Company Number: CN-BAYER-2023A168185

PATIENT
  Age: 33 Year
  Sex: Female

DRUGS (2)
  1. AVELOX [Suspect]
     Active Substance: MOXIFLOXACIN HYDROCHLORIDE
     Indication: Pneumonia
     Dosage: UNK
     Route: 048
     Dates: start: 20231122
  2. COMPOUND SODIUM CHLORIDE [CALCIUM CHLORIDE;POTASSIUM CHLORIDE;SODI [Concomitant]
     Indication: Laboratory test
     Dosage: 500 ML
     Route: 041
     Dates: start: 20231122

REACTIONS (10)
  - Drug eruption [Recovering/Resolving]
  - Laryngeal oedema [Recovering/Resolving]
  - Generalised oedema [Recovering/Resolving]
  - Swelling face [Recovering/Resolving]
  - Dyspnoea [Recovered/Resolved]
  - Asthenia [Recovering/Resolving]
  - Chest discomfort [Recovered/Resolved]
  - Abdominal pain upper [Recovered/Resolved]
  - Listless [Recovering/Resolving]
  - Swelling of eyelid [Recovered/Resolved]

NARRATIVE: CASE EVENT DATE: 20231122
